FAERS Safety Report 15920276 (Version 1)
Quarter: 2019Q1

REPORT INFORMATION
  Report Type: Spontaneous
  Country: IT (occurrence: IT)
  Receive Date: 20190205
  Receipt Date: 20190205
  Transmission Date: 20190417
  Serious: Yes (Other)
  Sender: FDA-Public Use
  Company Number: IT-JNJFOC-20190203499

PATIENT

DRUGS (18)
  1. VINCRISTINE [Suspect]
     Active Substance: VINCRISTINE
     Indication: DIFFUSE LARGE B-CELL LYMPHOMA
     Route: 065
  2. DOXORUBICIN HYDROCHLORIDE. [Suspect]
     Active Substance: DOXORUBICIN HYDROCHLORIDE
     Indication: DIFFUSE LARGE B-CELL LYMPHOMA
     Route: 065
  3. VINCRISTINE [Suspect]
     Active Substance: VINCRISTINE
     Indication: PRIMARY MEDIASTINAL LARGE B-CELL LYMPHOMA
     Route: 065
  4. CYCLOPHOSPHAMIDE. [Suspect]
     Active Substance: CYCLOPHOSPHAMIDE
     Indication: PRIMARY MEDIASTINAL LARGE B-CELL LYMPHOMA
     Route: 065
  5. RITUXIMAB. [Suspect]
     Active Substance: RITUXIMAB
     Indication: DIFFUSE LARGE B-CELL LYMPHOMA
     Route: 065
  6. RITUXIMAB. [Suspect]
     Active Substance: RITUXIMAB
     Indication: PRIMARY MEDIASTINAL LARGE B-CELL LYMPHOMA
     Route: 065
  7. CYCLOPHOSPHAMIDE. [Suspect]
     Active Substance: CYCLOPHOSPHAMIDE
     Indication: LYMPHOMA
     Route: 065
  8. DOXORUBICIN HYDROCHLORIDE. [Suspect]
     Active Substance: DOXORUBICIN HYDROCHLORIDE
     Indication: PRIMARY MEDIASTINAL LARGE B-CELL LYMPHOMA
     Route: 065
  9. PREDNISONE. [Suspect]
     Active Substance: PREDNISONE
     Indication: LYMPHOMA
     Route: 065
  10. CYCLOPHOSPHAMIDE. [Suspect]
     Active Substance: CYCLOPHOSPHAMIDE
     Indication: DIFFUSE LARGE B-CELL LYMPHOMA
     Route: 065
  11. ETOPOSIDE. [Suspect]
     Active Substance: ETOPOSIDE
     Indication: DIFFUSE LARGE B-CELL LYMPHOMA
     Route: 065
  12. ETOPOSIDE. [Suspect]
     Active Substance: ETOPOSIDE
     Indication: LYMPHOMA
     Route: 065
  13. RITUXIMAB. [Suspect]
     Active Substance: RITUXIMAB
     Indication: LYMPHOMA
     Route: 065
  14. ETOPOSIDE. [Suspect]
     Active Substance: ETOPOSIDE
     Indication: PRIMARY MEDIASTINAL LARGE B-CELL LYMPHOMA
     Route: 065
  15. PREDNISONE. [Suspect]
     Active Substance: PREDNISONE
     Indication: PRIMARY MEDIASTINAL LARGE B-CELL LYMPHOMA
     Route: 065
  16. PREDNISONE. [Suspect]
     Active Substance: PREDNISONE
     Indication: DIFFUSE LARGE B-CELL LYMPHOMA
     Route: 065
  17. VINCRISTINE [Suspect]
     Active Substance: VINCRISTINE
     Indication: LYMPHOMA
     Route: 065
  18. DOXORUBICIN HYDROCHLORIDE. [Suspect]
     Active Substance: DOXORUBICIN HYDROCHLORIDE
     Indication: LYMPHOMA
     Route: 065

REACTIONS (7)
  - Thrombocytopenia [Unknown]
  - Product use in unapproved indication [Unknown]
  - Off label use [Unknown]
  - Neurotoxicity [Unknown]
  - Infection [Unknown]
  - Neutropenia [Unknown]
  - Cardiotoxicity [Unknown]
